FAERS Safety Report 6561831-5 (Version None)
Quarter: 2010Q1

REPORT INFORMATION
  Report Type: 
  Country: None (occurrence: None)
  Receive Date: 20100130
  Receipt Date: 20091027
  Transmission Date: 20100710
  Serious: No
  Sender: FDA-Public Use
  Company Number: US-ABBOTT-09P-163-0605984-00

PATIENT
  Sex: Female
  Weight: 90.8 kg

DRUGS (2)
  1. HUMIRA [Suspect]
     Indication: PSORIASIS
     Dates: start: 20090813, end: 20091006
  2. PREMARIN [Concomitant]
     Indication: MENOPAUSE

REACTIONS (5)
  - ILL-DEFINED DISORDER [None]
  - PRURITUS [None]
  - SKIN ATROPHY [None]
  - SKIN DISORDER [None]
  - SKIN TURGOR DECREASED [None]
